FAERS Safety Report 6142468-9 (Version None)
Quarter: 2009Q2

REPORT INFORMATION
  Report Type: 
  Country: None (occurrence: None)
  Receive Date: 20090401
  Receipt Date: 20090401
  Transmission Date: 20091009
  Serious: No
  Sender: FDA-Public Use
  Company Number: None

PATIENT
  Age: 57 Year
  Sex: Male

DRUGS (13)
  1. CHANTIX [Suspect]
     Dosage: RECENTLY
  2. OXYCONTIN [Concomitant]
  3. NORCO [Concomitant]
  4. HYDROCHLOROTHIAZIDE [Concomitant]
  5. LOTREL [Concomitant]
  6. COREG [Concomitant]
  7. PLAVIX [Concomitant]
  8. ASPIRIN [Concomitant]
  9. XOPENEX [Concomitant]
  10. SPIRIVA [Concomitant]
  11. MELOXICAM [Concomitant]
  12. VYTORIN [Concomitant]
  13. PREDNISONE TAB [Concomitant]

REACTIONS (1)
  - DYSPHAGIA [None]
